FAERS Safety Report 18741271 (Version 1)
Quarter: 2021Q1

REPORT INFORMATION
  Report Type: Other
  Country: IT (occurrence: IT)
  Receive Date: 20210114
  Receipt Date: 20210114
  Transmission Date: 20210419
  Serious: Yes (Hospitalization, Other)
  Sender: FDA-Public Use
  Company Number: IT-NEOPHARMA INC-000384

PATIENT
  Age: 62 Year
  Sex: Male

DRUGS (1)
  1. AMOXICILLIN. [Suspect]
     Active Substance: AMOXICILLIN
     Indication: DENTAL OPERATION
     Dosage: 500 MG

REACTIONS (7)
  - Sinusitis [Recovered/Resolved]
  - Cardiac arrest [Recovered/Resolved]
  - Metabolic acidosis [Recovered/Resolved]
  - Hypertensive heart disease [Recovered/Resolved]
  - Emphysema [Recovered/Resolved]
  - Kounis syndrome [Recovered/Resolved]
  - Respiratory acidosis [Recovered/Resolved]
